FAERS Safety Report 8943846 (Version 1)
Quarter: 2012Q4

REPORT INFORMATION
  Report Type: 
  Country: US (occurrence: US)
  Receive Date: 20121204
  Receipt Date: 20121204
  Transmission Date: 20130627
  Serious: Yes (Other)
  Sender: FDA-Public Use
  Company Number: US-US-EMD SERONO, INC.-7178717

PATIENT
  Sex: Male

DRUGS (2)
  1. REBIF [Suspect]
     Indication: MULTIPLE SCLEROSIS
     Route: 058
     Dates: start: 20031027
  2. MECLIZINE [Concomitant]
     Indication: DIZZINESS

REACTIONS (7)
  - Optic neuritis [Unknown]
  - Sinus disorder [Unknown]
  - Sensory disturbance [Unknown]
  - Hypoaesthesia [Unknown]
  - Multiple sclerosis [Unknown]
  - Injection site pain [Unknown]
  - Injection site pain [Unknown]
